FAERS Safety Report 9747572 (Version 2)
Quarter: 2014Q2

REPORT INFORMATION
  Report Type: Spontaneous
  Country: US (occurrence: None)
  Receive Date: 20131206
  Receipt Date: 20140401
  Transmission Date: 20141212
  Serious: Yes (Other)
  Sender: FDA-Public Use
  Company Number: 2013-US-003819

PATIENT
  Age: 27 Year
  Sex: Female
  Weight: 68.5 kg

DRUGS (6)
  1. XYREM [Suspect]
     Indication: CATAPLEXY
     Route: 048
     Dates: start: 201310
  2. XYREM [Suspect]
     Indication: NARCOLEPSY
     Route: 048
     Dates: start: 201310
  3. ELMIRON (PENTOSAN POLYSULFATE SODIUM) [Concomitant]
  4. MAXALT (RIZATRIPTAN) [Concomitant]
  5. ROBAXIN (METHOCARBAMOL) [Concomitant]
  6. IBUPROFEN (IBUPROFEN) [Concomitant]

REACTIONS (2)
  - Sleep apnoea syndrome [None]
  - No adverse event [None]
